FAERS Safety Report 5613371-5 (Version None)
Quarter: 2008Q1

REPORT INFORMATION
  Report Type: 
  Country: None (occurrence: None)
  Receive Date: 20080129
  Receipt Date: 20080117
  Transmission Date: 20080703
  Serious: Yes (Other)
  Sender: FDA-Public Use
  Company Number: 2008JP000268

PATIENT
  Sex: Female
  Weight: 46 kg

DRUGS (7)
  1. PROGRAF [Suspect]
     Indication: LIVER TRANSPLANT
     Dosage: 1 MG, BID, ORAL
     Route: 048
     Dates: start: 19940901
  2. OXATOMIDE [Suspect]
     Indication: ACNE
     Dosage: 1 DF, BID, ORAL
     Route: 048
     Dates: start: 20060307, end: 20060320
  3. OXATOMIDE [Suspect]
     Indication: ACNE
     Dosage: 1 DF, BID, ORAL
     Route: 048
     Dates: start: 20051220
  4. OXATOMIDE [Suspect]
     Indication: ACNE
     Dosage: 1 DF, BID, ORAL
     Route: 048
     Dates: start: 20060117
  5. OXATOMIDE [Suspect]
     Indication: ACNE
     Dosage: 1 DF, BID, ORAL
     Route: 048
     Dates: start: 20060214
  6. VIBRAMYCIN [Suspect]
     Indication: ACNE
     Dosage: 100 MG, UID/QD, ORAL
     Route: 048
     Dates: start: 20060307, end: 20060320
  7. VIBRAMYCIN [Suspect]
     Indication: ACNE
     Dosage: 100 MG, UID/QD, ORAL
     Route: 048
     Dates: start: 20060214

REACTIONS (2)
  - DRUG INTERACTION [None]
  - DRUG LEVEL INCREASED [None]
